FAERS Safety Report 11496910 (Version 1)
Quarter: 2015Q3

REPORT INFORMATION
  Report Type: Spontaneous
  Country: US (occurrence: US)
  Receive Date: 20150911
  Receipt Date: 20150911
  Transmission Date: 20151125
  Serious: Yes (Other)
  Sender: FDA-Public Use
  Company Number: US-JNJFOC-20150808664

PATIENT
  Sex: Male
  Weight: 74.39 kg

DRUGS (1)
  1. XARELTO [Suspect]
     Active Substance: RIVAROXABAN
     Indication: TRANSIENT ISCHAEMIC ATTACK
     Route: 048
     Dates: start: 20140521

REACTIONS (3)
  - Mouth haemorrhage [Recovered/Resolved]
  - Off label use [Unknown]
  - Blood urine present [Unknown]

NARRATIVE: CASE EVENT DATE: 2014
